FAERS Safety Report 4456264-1 (Version None)
Quarter: 2004Q3

REPORT INFORMATION
  Report Type: 
  Country: None (occurrence: None)
  Receive Date: 20040917
  Receipt Date: 20040830
  Transmission Date: 20050211
  Serious: Yes (Other)
  Sender: FDA-Public Use
  Company Number: USA040876825

PATIENT
  Age: 27 Year
  Sex: Male
  Weight: 75 kg

DRUGS (1)
  1. HUMALOG [Suspect]
     Dosage: 22 U DAY
     Dates: start: 19960101

REACTIONS (2)
  - BONE INFECTION [None]
  - SKIN ULCER [None]
